FAERS Safety Report 9257149 (Version 1)
Quarter: 2013Q2

REPORT INFORMATION
  Report Type: Spontaneous
  Country: FR (occurrence: FR)
  Receive Date: 20130426
  Receipt Date: 20130426
  Transmission Date: 20140414
  Serious: Yes (Other)
  Sender: FDA-Public Use
  Company Number: FR-GENZYME-THYM-1003762

PATIENT
  Age: 21 Year
  Sex: Male

DRUGS (16)
  1. THYMOGLOBULINE [Suspect]
     Indication: BONE MARROW CONDITIONING REGIMEN
     Dosage: 2.5 MG/KG, QD (ON DAY -3)
     Route: 042
     Dates: start: 20130311, end: 20130312
  2. THYMOGLOBULINE [Suspect]
     Dosage: 2.5 MG/KG, UNK (ON DAY -2)
     Route: 042
     Dates: start: 20130312, end: 20130312
  3. THYMOGLOBULINE [Suspect]
     Dosage: 2.5 MG/KG, UNK (ON DAY -2)
     Route: 042
     Dates: start: 20130312
  4. ENDOXAN [Concomitant]
     Indication: BONE MARROW CONDITIONING REGIMEN
     Dosage: 120 MG/KG (3.9 G), QD (ON DAY -4 AND -3)
     Route: 065
     Dates: start: 20130310, end: 20130311
  5. ZOPHREN [Concomitant]
     Indication: PREMEDICATION
     Dosage: UNK
     Route: 065
     Dates: start: 20130310, end: 20130312
  6. MESNA [Concomitant]
     Indication: PREMEDICATION
     Dosage: UNK
     Route: 065
     Dates: start: 20130310, end: 20130312
  7. SOLU MEDROL [Concomitant]
     Indication: PREMEDICATION
     Dosage: 40 MG, UNK
     Route: 065
     Dates: start: 20130311, end: 20130311
  8. SOLU MEDROL [Concomitant]
     Dosage: 40 MG, UNK
     Route: 065
     Dates: start: 20130312, end: 20130312
  9. SOLU MEDROL [Concomitant]
     Dosage: 70 MG, Q1HR
     Route: 065
     Dates: start: 20130312
  10. POLARAMINE [Concomitant]
     Indication: PREMEDICATION
     Dosage: ONE AMPULE
     Route: 065
     Dates: start: 20130311, end: 20130311
  11. POLARAMINE [Concomitant]
     Dosage: 1 DF, UNK
     Route: 065
     Dates: start: 20130312, end: 20130312
  12. PERFALGAN [Concomitant]
     Indication: PREMEDICATION
     Dosage: UNK
     Route: 065
     Dates: start: 20130311
  13. PERFALGAN [Concomitant]
     Dosage: 1 G, UNK
     Dates: start: 20130312
  14. PERFALGAN [Concomitant]
     Dosage: 1 G, UNK
     Route: 065
     Dates: start: 20130312
  15. ATARAX [Concomitant]
     Indication: PREMEDICATION
     Dosage: UNK
     Route: 065
     Dates: start: 20130312
  16. CYCLOSPORIN [Concomitant]
     Indication: PROPHYLAXIS AGAINST TRANSPLANT REJECTION
     Dosage: 130 MG, QD
     Route: 065
     Dates: start: 20130310

REACTIONS (12)
  - Paraesthesia [Recovered/Resolved]
  - Chest discomfort [Recovered/Resolved]
  - Hyperhidrosis [Recovered/Resolved]
  - Cough [Recovered/Resolved]
  - Erythema [Recovered/Resolved]
  - Face oedema [Recovered/Resolved]
  - Dyspnoea [Recovered/Resolved]
  - Hypotension [Recovered/Resolved]
  - Diarrhoea [Recovered/Resolved]
  - Vomiting [Recovered/Resolved]
  - Chills [Recovered/Resolved]
  - Infusion related reaction [Recovered/Resolved]
